FAERS Safety Report 7814937-4 (Version None)
Quarter: 2011Q4

REPORT INFORMATION
  Report Type: 
  Country: None (occurrence: None)
  Receive Date: 20111014
  Receipt Date: 20110930
  Transmission Date: 20120403
  Serious: Yes (Hospitalization)
  Sender: FDA-Public Use
  Company Number: NL-MEDIMMUNE-MEDI-0013677

PATIENT
  Sex: Male
  Weight: 5.54 kg

DRUGS (2)
  1. FLECAINIDECICETAAR [Concomitant]
  2. SYNAGIS [Suspect]
     Route: 030

REACTIONS (8)
  - COUGH [None]
  - DYSPNOEA [None]
  - WHEEZING [None]
  - CRYING [None]
  - HYPOTONIA [None]
  - INFANTILE SPITTING UP [None]
  - CYANOSIS [None]
  - PYREXIA [None]
